FAERS Safety Report 18227070 (Version 2)
Quarter: 2020Q4

REPORT INFORMATION
  Report Type: Spontaneous
  Country: US (occurrence: US)
  Receive Date: 20200903
  Receipt Date: 20201110
  Transmission Date: 20210113
  Serious: No
  Sender: FDA-Public Use
  Company Number: US-PFIZER INC-2020174575

PATIENT
  Age: 54 Year
  Sex: Female

DRUGS (2)
  1. LETROZOLE. [Suspect]
     Active Substance: LETROZOLE
     Dosage: UNK, DAILY
  2. IBRANCE [Suspect]
     Active Substance: PALBOCICLIB
     Indication: BREAST CANCER FEMALE
     Dosage: 125 MG, CYCLIC (DAILY FOR 21 DAYS OF A 28 DAY CYCLE)
     Route: 048
     Dates: start: 20200604

REACTIONS (6)
  - Hot flush [Unknown]
  - Product use in unapproved indication [Unknown]
  - White blood cell count decreased [Not Recovered/Not Resolved]
  - Dry skin [Unknown]
  - Off label use [Unknown]
  - Arthralgia [Unknown]

NARRATIVE: CASE EVENT DATE: 2020
